FAERS Safety Report 4675086-X (Version None)
Quarter: 2005Q2

REPORT INFORMATION
  Report Type: 
  Country: None (occurrence: None)
  Receive Date: 20050526
  Receipt Date: 20030127
  Transmission Date: 20051028
  Serious: Yes (Hospitalization)
  Sender: FDA-Public Use
  Company Number: US-MERCK-0301USA02557

PATIENT
  Age: 64 Year
  Sex: Female
  Weight: 71 kg

DRUGS (15)
  1. VIOXX [Suspect]
     Indication: SPINAL COLUMN STENOSIS
     Route: 048
     Dates: start: 20021125, end: 20030106
  2. VIOXX [Suspect]
     Route: 048
     Dates: start: 20000901, end: 20000901
  3. VIOXX [Suspect]
     Route: 048
     Dates: start: 20000901, end: 20010201
  4. VIOXX [Suspect]
     Indication: SPONDYLITIS
     Route: 048
     Dates: start: 20021125, end: 20030106
  5. VIOXX [Suspect]
     Route: 048
     Dates: start: 20000901, end: 20000901
  6. VIOXX [Suspect]
     Route: 048
     Dates: start: 20000901, end: 20010201
  7. LIPITOR [Concomitant]
     Indication: HYPERCHOLESTEROLAEMIA
     Route: 048
     Dates: start: 19990101
  8. LORAZEPAM [Concomitant]
     Route: 065
  9. SEROQUEL [Concomitant]
     Route: 065
  10. NORVASC [Concomitant]
     Indication: HYPERTENSION
     Route: 048
     Dates: start: 20021210, end: 20030124
  11. MOTRIN [Concomitant]
     Route: 065
  12. NAPROSYN [Concomitant]
     Route: 065
  13. TIAZAC [Concomitant]
     Indication: ANGINA PECTORIS
     Route: 048
     Dates: start: 20030101
  14. FLEXERIL [Concomitant]
     Indication: MUSCLE SPASMS
     Route: 048
     Dates: start: 20000501
  15. PRILOSEC [Concomitant]
     Indication: GASTROOESOPHAGEAL REFLUX DISEASE
     Route: 048
     Dates: start: 20000501

REACTIONS (24)
  - ABDOMINAL PAIN UPPER [None]
  - ACUTE CORONARY SYNDROME [None]
  - ARRHYTHMIA [None]
  - CAROTID ARTERY STENOSIS [None]
  - CHEST DISCOMFORT [None]
  - CHRONIC HEPATITIS [None]
  - CONTUSION [None]
  - DRUG INEFFECTIVE [None]
  - DRUG INTOLERANCE [None]
  - DYSPEPSIA [None]
  - DYSPNOEA [None]
  - EXOSTOSIS [None]
  - FALL [None]
  - FIBROMYALGIA [None]
  - HEAD INJURY [None]
  - MITRAL VALVE INCOMPETENCE [None]
  - MYOFASCIAL PAIN SYNDROME [None]
  - NAUSEA [None]
  - NECK PAIN [None]
  - OEDEMA PERIPHERAL [None]
  - PAIN IN EXTREMITY [None]
  - PALPITATIONS [None]
  - ROSACEA [None]
  - SYNCOPE [None]
